FAERS Safety Report 4713401-9 (Version None)
Quarter: 2005Q3

REPORT INFORMATION
  Report Type: 
  Country: None (occurrence: None)
  Receive Date: 20050713
  Receipt Date: 20050706
  Transmission Date: 20060218
  Serious: Yes (Hospitalization, Other)
  Sender: FDA-Public Use
  Company Number: US-JNJFOC-20050507364

PATIENT
  Sex: Male

DRUGS (1)
  1. DURAGESIC-100 [Suspect]
     Indication: INTENTIONAL MISUSE
     Route: 062
     Dates: start: 20050527

REACTIONS (3)
  - CARDIAC ARREST [None]
  - DRUG ABUSER [None]
  - MYOCARDIAL INFARCTION [None]
